FAERS Safety Report 8445291-5 (Version None)
Quarter: 2012Q2

REPORT INFORMATION
  Report Type: 
  Country: None (occurrence: None)
  Receive Date: 20120618
  Receipt Date: 20120611
  Transmission Date: 20120825
  Serious: No
  Sender: FDA-Public Use
  Company Number: US-B.I. PHARMACEUTICALS,INC./RIDGEFIELD-2012-BP-13483BP

PATIENT
  Sex: Female

DRUGS (8)
  1. SPIRIVA [Suspect]
     Indication: CHRONIC OBSTRUCTIVE PULMONARY DISEASE
     Dosage: 18 MCG
     Route: 055
     Dates: start: 20120521, end: 20120609
  2. GABAPENTIN [Concomitant]
     Indication: MUSCLE SPASMS
     Dosage: 200 MG
     Route: 048
     Dates: start: 20120521
  3. IBUPROFEN [Concomitant]
     Indication: JOINT SWELLING
     Dosage: 1600 MG
     Route: 048
     Dates: start: 20120315
  4. DUONEB [Concomitant]
     Indication: CHRONIC OBSTRUCTIVE PULMONARY DISEASE
     Route: 055
     Dates: start: 20120521
  5. PROAIR HFA [Concomitant]
     Indication: CHRONIC OBSTRUCTIVE PULMONARY DISEASE
     Dosage: 4 PUF
     Route: 055
     Dates: start: 20120521
  6. FLONASE [Concomitant]
     Indication: NASAL CONGESTION
     Route: 045
     Dates: start: 20120521
  7. ERGOCALCIFEROL [Concomitant]
     Indication: VITAMIN D DEFICIENCY
     Route: 048
     Dates: start: 20120510
  8. OMEPRAZOLE [Concomitant]
     Indication: GASTROOESOPHAGEAL REFLUX DISEASE
     Dosage: 20 MG
     Route: 048
     Dates: start: 20111214

REACTIONS (3)
  - CHEST PAIN [None]
  - DYSPNOEA [None]
  - PRODUCTIVE COUGH [None]
